FAERS Safety Report 6100801-8 (Version None)
Quarter: 2009Q1

REPORT INFORMATION
  Report Type: 
  Country: None (occurrence: None)
  Receive Date: 20090303
  Receipt Date: 20090224
  Transmission Date: 20090719
  Serious: Yes (Other)
  Sender: FDA-Public Use
  Company Number: TR-GILEAD-2009-0020328

PATIENT
  Age: 51 Year
  Sex: Female
  Weight: 73.5 kg

DRUGS (3)
  1. TENOFOVIR DISOPROXIL FUMARATE [Suspect]
     Indication: HEPATITIS B
     Route: 048
     Dates: start: 20080826, end: 20081215
  2. HEPSERA [Suspect]
     Indication: HEPATITIS B
     Dates: start: 20050101, end: 20080801
  3. ZEFFIX [Concomitant]
     Indication: HEPATITIS B
     Route: 048
     Dates: start: 20030101

REACTIONS (3)
  - BONE PAIN [None]
  - DRUG INEFFECTIVE [None]
  - MYALGIA [None]
